FAERS Safety Report 15075567 (Version 4)
Quarter: 2018Q4

REPORT INFORMATION
  Report Type: Report from Study
  Country: JP (occurrence: JP)
  Receive Date: 20180627
  Receipt Date: 20181115
  Transmission Date: 20190204
  Serious: Yes (Death, Hospitalization, Disabling)
  Sender: FDA-Public Use
  Company Number: JP-ACTELION-A-CH2018-174356

PATIENT
  Age: 75 Year
  Sex: Male

DRUGS (24)
  1. VENTAVIS [Suspect]
     Active Substance: ILOPROST
     Dosage: 2.5 ?G, Q4HRS
     Route: 055
     Dates: start: 20160831, end: 20160902
  2. BERASUS [Suspect]
     Active Substance: BERAPROST SODIUM
     Dosage: 120 ?G, BID
     Route: 048
     Dates: start: 20160308, end: 20160310
  3. NU-LOTAN [Concomitant]
     Active Substance: LOSARTAN POTASSIUM
  4. CONIEL [Concomitant]
     Active Substance: BENIDIPINE HYDROCHLORIDE
  5. PARIET [Concomitant]
     Active Substance: RABEPRAZOLE SODIUM
  6. DIART [Concomitant]
     Active Substance: AZOSEMIDE
  7. FEBURIC [Concomitant]
     Active Substance: FEBUXOSTAT
  8. VENTAVIS [Suspect]
     Active Substance: ILOPROST
     Indication: PULMONARY ARTERIAL HYPERTENSION
     Dosage: 5 ?G,  8 TIMES AS DAY
     Route: 055
     Dates: start: 20160914, end: 20161113
  9. BERASUS [Suspect]
     Active Substance: BERAPROST SODIUM
     Dosage: 120 ?G, BID
     Route: 048
     Dates: start: 20160405, end: 20160719
  10. OXYGEN. [Concomitant]
     Active Substance: OXYGEN
  11. VENTAVIS [Suspect]
     Active Substance: ILOPROST
     Dosage: 2.5 ?G, 8 TIMES AS DAY
     Route: 055
     Dates: start: 20160903, end: 20160913
  12. REVATIO [Concomitant]
     Active Substance: SILDENAFIL CITRATE
  13. OPSUMIT [Suspect]
     Active Substance: MACITENTAN
     Dosage: 10 MG, QD
     Route: 048
     Dates: start: 20150610, end: 20160216
  14. VENTAVIS [Suspect]
     Active Substance: ILOPROST
     Dosage: 2.5 ?G,  8 TIMES AS DAY
     Route: 055
     Dates: start: 20161114, end: 20170125
  15. BERASUS [Suspect]
     Active Substance: BERAPROST SODIUM
     Indication: PULMONARY ARTERIAL HYPERTENSION
     Dosage: 60 ?G, BID
     Route: 048
     Dates: start: 20160304, end: 20160307
  16. URINORM [Concomitant]
     Active Substance: BENZBROMARONE
  17. NATRIX [Concomitant]
     Active Substance: INDAPAMIDE
  18. OPSUMIT [Suspect]
     Active Substance: MACITENTAN
     Indication: PULMONARY ARTERIAL HYPERTENSION
     Dosage: 10 MG, QD
     Route: 048
     Dates: start: 20160226, end: 20170125
  19. BAYASPIRIN [Concomitant]
     Active Substance: ASPIRIN
  20. SPIRONOLACTONE. [Concomitant]
     Active Substance: SPIRONOLACTONE
  21. BERASUS [Suspect]
     Active Substance: BERAPROST SODIUM
     Dosage: 120 ?G, TID
     Route: 048
     Dates: start: 20160311, end: 20160404
  22. CRESTOR [Concomitant]
     Active Substance: ROSUVASTATIN CALCIUM
  23. ADCIRCA [Concomitant]
     Active Substance: TADALAFIL
  24. LOSARTAN POTASSIUM. [Concomitant]
     Active Substance: LOSARTAN POTASSIUM

REACTIONS (12)
  - Pericardial effusion [Recovering/Resolving]
  - Diarrhoea [Recovering/Resolving]
  - Headache [Recovering/Resolving]
  - Concomitant disease aggravated [Fatal]
  - Pulmonary hypertension [Recovering/Resolving]
  - Myalgia [Recovering/Resolving]
  - Respiratory failure [Fatal]
  - Renal impairment [Not Recovered/Not Resolved]
  - Pleural effusion [Fatal]
  - Anaemia [Recovered/Resolved]
  - Oxygen saturation decreased [Fatal]
  - Right ventricular failure [Fatal]

NARRATIVE: CASE EVENT DATE: 20150630
